FAERS Safety Report 22211176 (Version 1)
Quarter: 2023Q2

REPORT INFORMATION
  Report Type: Spontaneous
  Country: RU (occurrence: RU)
  Receive Date: 20230414
  Receipt Date: 20230414
  Transmission Date: 20230722
  Serious: Yes (Life-Threatening, Other)
  Sender: FDA-Public Use
  Company Number: RU-BoehringerIngelheim-2023-BI-231491

PATIENT
  Age: 64 Year
  Sex: Male
  Weight: 91.8 kg

DRUGS (4)
  1. PRADAXA [Suspect]
     Active Substance: DABIGATRAN ETEXILATE MESYLATE
     Indication: Atrial fibrillation
     Route: 048
     Dates: start: 2022, end: 20230330
  2. BISOPROLOL [Concomitant]
     Active Substance: BISOPROLOL
     Indication: Product used for unknown indication
     Route: 048
  3. ATORVASTATIN CALCIUM [Concomitant]
     Active Substance: ATORVASTATIN CALCIUM
     Indication: Product used for unknown indication
     Route: 048
  4. PERINDOPRIL [Concomitant]
     Active Substance: PERINDOPRIL
     Indication: Product used for unknown indication
     Route: 048

REACTIONS (1)
  - Ischaemic stroke [Recovered/Resolved]

NARRATIVE: CASE EVENT DATE: 20230330
